FAERS Safety Report 18335290 (Version 1)
Quarter: 2020Q3

REPORT INFORMATION
  Report Type: Spontaneous
  Country: US (occurrence: US)
  Receive Date: 20200930
  Receipt Date: 20200930
  Transmission Date: 20201103
  Serious: Yes (Life-Threatening, Hospitalization)
  Sender: FDA-Public Use
  Company Number: None

PATIENT
  Age: 71 Year
  Sex: Female

DRUGS (4)
  1. ENOXAPARIN [Suspect]
     Active Substance: ENOXAPARIN
     Indication: FIBRIN D DIMER INCREASED
     Route: 058
     Dates: start: 20200815, end: 20200921
  2. CLOPIDOREL 75MG DAILY [Concomitant]
  3. ENOXAPARIN [Suspect]
     Active Substance: ENOXAPARIN
     Indication: CEREBROVASCULAR ACCIDENT
     Route: 058
     Dates: start: 20200815, end: 20200921
  4. ENOXAPARIN [Suspect]
     Active Substance: ENOXAPARIN
     Indication: SARS-COV-2 TEST POSITIVE
     Route: 058
     Dates: start: 20200815, end: 20200921

REACTIONS (3)
  - Gastrointestinal haemorrhage [None]
  - Abdominal pain [None]
  - Melaena [None]

NARRATIVE: CASE EVENT DATE: 20200827
